FAERS Safety Report 13758854 (Version 3)
Quarter: 2017Q3

REPORT INFORMATION
  Report Type: Report from Study
  Country: None (occurrence: US)
  Receive Date: 20170717
  Receipt Date: 20170929
  Transmission Date: 20171127
  Serious: Yes (Other)
  Sender: FDA-Public Use
  Company Number: US-ABBVIE-17K-163-2038255-00

PATIENT
  Sex: Female

DRUGS (2)
  1. HUMIRA [Suspect]
     Active Substance: ADALIMUMAB
     Route: 058
     Dates: start: 201704
  2. HUMIRA [Suspect]
     Active Substance: ADALIMUMAB
     Indication: RHEUMATOID ARTHRITIS
     Route: 058
     Dates: start: 201608, end: 2017

REACTIONS (17)
  - Limb injury [Recovering/Resolving]
  - Pain [Not Recovered/Not Resolved]
  - Joint injury [Recovering/Resolving]
  - Burning sensation [Not Recovered/Not Resolved]
  - Spinal fracture [Recovering/Resolving]
  - Post procedural infection [Recovered/Resolved]
  - Fatigue [Recovering/Resolving]
  - Spondylitis [Not Recovered/Not Resolved]
  - Fall [Recovering/Resolving]
  - Musculoskeletal stiffness [Not Recovered/Not Resolved]
  - Pain in extremity [Recovered/Resolved]
  - Rheumatoid arthritis [Not Recovered/Not Resolved]
  - Ingrowing nail [Recovered/Resolved]
  - Musculoskeletal disorder [Unknown]
  - Joint range of motion decreased [Unknown]
  - Osteoarthritis [Not Recovered/Not Resolved]
  - Paronychia [Recovered/Resolved]

NARRATIVE: CASE EVENT DATE: 2017
